FAERS Safety Report 16350233 (Version 1)
Quarter: 2019Q2

REPORT INFORMATION
  Report Type: Spontaneous
  Country: US (occurrence: US)
  Receive Date: 20190523
  Receipt Date: 20190523
  Transmission Date: 20190711
  Serious: No
  Sender: FDA-Public Use
  Company Number: US-GLAXOSMITHKLINE-US2019090903

PATIENT
  Age: 74 Year
  Sex: Male

DRUGS (1)
  1. ABREVA [Suspect]
     Active Substance: DOCOSANOL
     Indication: ORAL HERPES
     Dosage: ATLEAST 4 TIMES A DAY

REACTIONS (7)
  - Incorrect product administration duration [Unknown]
  - Lip dry [Unknown]
  - Lip haemorrhage [Unknown]
  - Intentional product misuse [Unknown]
  - Inappropriate schedule of product administration [Unknown]
  - Chapped lips [Unknown]
  - Incorrect dose administered [Unknown]
